FAERS Safety Report 12397813 (Version 1)
Quarter: 2016Q2

REPORT INFORMATION
  Report Type: Spontaneous
  Country: US (occurrence: US)
  Receive Date: 20160524
  Receipt Date: 20160524
  Transmission Date: 20160815
  Serious: Yes (Other)
  Sender: FDA-Public Use
  Company Number: US-RECKITT BENCKISER HEALTHCARE INT LIMITED-RB-85799-2016

PATIENT
  Age: 60 Year
  Sex: Female

DRUGS (1)
  1. CLEARASIL DAILY CLEAR VANISHING ACNE TREATMENT [Suspect]
     Active Substance: BENZOYL PEROXIDE
     Indication: PRODUCT USED FOR UNKNOWN INDICATION
     Dosage: USED TWICE, APPLIED THE PRODUCT TO 4 PLACES ON HER FACE, HER CHIN, BOTH CHEEKS AND UNDER THE CHIN
     Route: 061
     Dates: start: 20160512, end: 20160513

REACTIONS (7)
  - Swelling [Not Recovered/Not Resolved]
  - Hypersensitivity [Not Recovered/Not Resolved]
  - Pyrexia [Not Recovered/Not Resolved]
  - Erythema [Not Recovered/Not Resolved]
  - Haemorrhage [Not Recovered/Not Resolved]
  - Pruritus [Not Recovered/Not Resolved]
  - Acne cystic [Not Recovered/Not Resolved]

NARRATIVE: CASE EVENT DATE: 201605
